FAERS Safety Report 9898045 (Version 1)
Quarter: 2014Q1

REPORT INFORMATION
  Report Type: Spontaneous
  Country: US (occurrence: US)
  Receive Date: 20140214
  Receipt Date: 20140214
  Transmission Date: 20141002
  Serious: Yes (Other)
  Sender: FDA-Public Use
  Company Number: US-BAYER-2014-019613

PATIENT
  Sex: Female

DRUGS (3)
  1. ALEVE CAPLET [Suspect]
     Indication: OSTEOARTHRITIS
     Dosage: 2-3 DF, PRN
  2. VOLTAREN [Suspect]
  3. SIMVASTATIN [Concomitant]

REACTIONS (6)
  - Cardiac flutter [None]
  - Drug abuse [None]
  - Cardiac failure [None]
  - Unevaluable event [None]
  - Medication error [None]
  - Vision blurred [None]
